FAERS Safety Report 4696242-0 (Version None)
Quarter: 2005Q2

REPORT INFORMATION
  Report Type: 
  Country: None (occurrence: None)
  Receive Date: 20050621
  Receipt Date: 20050613
  Transmission Date: 20051028
  Serious: Yes (Death, Other)
  Sender: FDA-Public Use
  Company Number: 05-06-1026

PATIENT
  Age: 83 Year
  Sex: Female

DRUGS (3)
  1. PHENYTOIN [Suspect]
     Indication: STATUS EPILEPTICUS
     Dosage: 750MG INTRA-ARTERIAL
     Route: 013
  2. DIAZEPAM RECTAL [Concomitant]
  3. PARALDEHYDE [Concomitant]

REACTIONS (12)
  - ARTERIAL OCCLUSIVE DISEASE [None]
  - EXTRAVASATION [None]
  - GANGRENE [None]
  - GENERAL PHYSICAL HEALTH DETERIORATION [None]
  - MEDICATION ERROR [None]
  - PAIN IN EXTREMITY [None]
  - PALLOR [None]
  - PARAESTHESIA [None]
  - PERIPHERAL ISCHAEMIA [None]
  - PHLEBOTHROMBOSIS [None]
  - PROCEDURAL COMPLICATION [None]
  - VEIN DISORDER [None]
